FAERS Safety Report 9878249 (Version 3)
Quarter: 2014Q1

REPORT INFORMATION
  Report Type: Spontaneous
  Country: DE (occurrence: DE)
  Receive Date: 20140206
  Receipt Date: 20140324
  Transmission Date: 20141002
  Serious: Yes (Hospitalization)
  Sender: FDA-Public Use
  Company Number: DE-THROMBOGENICS INC-JET-2014-023

PATIENT
  Sex: 0

DRUGS (1)
  1. JETREA [Suspect]
     Indication: VITREOUS ADHESIONS
     Dosage: 0.1 ML, ONE TIME DOSE
     Route: 031
     Dates: start: 20131218, end: 20131218

REACTIONS (4)
  - Eye pain [Recovered/Resolved]
  - Ocular hyperaemia [Recovered/Resolved]
  - Eye irritation [Recovered/Resolved]
  - Visual acuity reduced [Recovered/Resolved]
